FAERS Safety Report 24630136 (Version 1)
Quarter: 2024Q4

REPORT INFORMATION
  Report Type: Report from Study
  Country: ES (occurrence: ES)
  Receive Date: 20241118
  Receipt Date: 20241118
  Transmission Date: 20250115
  Serious: Yes (Other)
  Sender: SAMSUNG BIOEPIS
  Company Number: ES-SAMSUNG BIOEPIS-SB-2024-34240

PATIENT
  Sex: Female

DRUGS (1)
  1. ETANERCEPT [Suspect]
     Active Substance: ETANERCEPT
     Indication: Undifferentiated spondyloarthritis
     Route: 058

REACTIONS (2)
  - COVID-19 pneumonia [Unknown]
  - Product use in unapproved indication [Unknown]
